FAERS Safety Report 6016540-8 (Version None)
Quarter: 2008Q4

REPORT INFORMATION
  Report Type: 
  Country: None (occurrence: None)
  Receive Date: 20081222
  Receipt Date: 20081216
  Transmission Date: 20090506
  Serious: Yes (Hospitalization)
  Sender: FDA-Public Use
  Company Number: US-JNJFOC-20081204642

PATIENT
  Sex: Male
  Weight: 104.33 kg

DRUGS (2)
  1. HALDOL [Suspect]
     Route: 065
  2. HALDOL [Suspect]
     Indication: DRUG USE FOR UNKNOWN INDICATION
     Route: 065

REACTIONS (4)
  - HOSPITALISATION [None]
  - SKIN BURNING SENSATION [None]
  - TARDIVE DYSKINESIA [None]
  - WEIGHT INCREASED [None]
